FAERS Safety Report 20025704 (Version 1)
Quarter: 2021Q4

REPORT INFORMATION
  Report Type: Spontaneous
  Country: CA (occurrence: CA)
  Receive Date: 20211102
  Receipt Date: 20211102
  Transmission Date: 20220303
  Serious: Yes (Other)
  Sender: FDA-Public Use
  Company Number: CA-TAKEDA-2021TUS044379

PATIENT
  Age: 27 Year
  Sex: Male

DRUGS (2)
  1. HUMAN IMMUNOGLOBULIN G [Suspect]
     Active Substance: HUMAN IMMUNOGLOBULIN G
     Indication: Sepsis
     Dosage: 60 GRAM, ONE DOSE
     Route: 042
     Dates: start: 20210305, end: 20210305
  2. HUMAN IMMUNOGLOBULIN G [Suspect]
     Active Substance: HUMAN IMMUNOGLOBULIN G
     Dosage: 60 MILLIGRAM, QD
     Route: 042

REACTIONS (3)
  - Transfusion [Recovered/Resolved]
  - Coombs direct test [Recovered/Resolved]
  - Red blood cell abnormality [Recovered/Resolved]

NARRATIVE: CASE EVENT DATE: 20210305
